FAERS Safety Report 11835372 (Version 24)
Quarter: 2021Q4

REPORT INFORMATION
  Report Type: Other
  Country: CA (occurrence: CA)
  Receive Date: 20151215
  Receipt Date: 20211012
  Transmission Date: 20220303
  Serious: Yes (Other)
  Sender: FDA-Public Use
  Company Number: CA-ROCHE-1251218

PATIENT
  Age: 53 Year
  Sex: Female
  Weight: 79.4 kg

DRUGS (18)
  1. RITUXAN [Suspect]
     Active Substance: RITUXIMAB
     Indication: Rheumatoid arthritis
     Dosage: PREVIOUS RITUXIMAB DOSE WAS RECEIVED ON 13/FEB/2019
     Route: 041
     Dates: start: 20130711
  2. RITUXAN [Suspect]
     Active Substance: RITUXIMAB
     Dosage: 18/DEC/2017, RECENT DOSE
     Route: 042
     Dates: start: 20150203
  3. CYMBALTA [Suspect]
     Active Substance: DULOXETINE HYDROCHLORIDE
     Indication: Depression
     Route: 065
     Dates: start: 201410
  4. CYMBALTA [Suspect]
     Active Substance: DULOXETINE HYDROCHLORIDE
     Route: 065
  5. ACETAMINOPHEN\OXYCODONE HYDROCHLORIDE [Concomitant]
     Active Substance: ACETAMINOPHEN\OXYCODONE HYDROCHLORIDE
     Dates: start: 201410
  6. BENADRYL [Concomitant]
     Active Substance: DIPHENHYDRAMINE HYDROCHLORIDE
     Indication: Premedication
     Route: 048
     Dates: start: 20130711
  7. SOLU-MEDROL [Concomitant]
     Active Substance: METHYLPREDNISOLONE SODIUM SUCCINATE
     Indication: Premedication
     Route: 042
     Dates: start: 20130711
  8. METHOTREXATE [Concomitant]
     Active Substance: METHOTREXATE
     Indication: Premedication
     Route: 042
  9. FOLIC ACID [Concomitant]
     Active Substance: FOLIC ACID
  10. PREDNISONE [Concomitant]
     Active Substance: PREDNISONE
  11. ALEVE [Concomitant]
     Active Substance: NAPROXEN SODIUM
     Dosage: AS REQUIRED
  12. TYLENOL [Concomitant]
     Active Substance: ACETAMINOPHEN
     Indication: Premedication
     Route: 048
     Dates: start: 20130711
  13. LOSARTAN [Concomitant]
     Active Substance: LOSARTAN
  14. ACETAMINOPHEN [Concomitant]
     Active Substance: ACETAMINOPHEN
     Indication: Premedication
     Route: 048
     Dates: start: 20130711
  15. DIPHENHYDRAMINE HYDROCHLORIDE [Concomitant]
     Active Substance: DIPHENHYDRAMINE HYDROCHLORIDE
     Indication: Premedication
     Route: 048
     Dates: start: 20130711
  16. METHYLPREDNISOLONE [Concomitant]
     Active Substance: METHYLPREDNISOLONE
     Route: 042
     Dates: start: 20130711
  17. CALCIUM [Concomitant]
     Active Substance: CALCIUM
  18. OXYCODONE [Concomitant]
     Active Substance: OXYCODONE

REACTIONS (28)
  - Depression [Not Recovered/Not Resolved]
  - Hypertension [Recovering/Resolving]
  - Nephrolithiasis [Unknown]
  - Skin warm [Unknown]
  - Cold sweat [Unknown]
  - Oropharyngeal pain [Recovered/Resolved]
  - Abdominal pain [Not Recovered/Not Resolved]
  - Infusion related reaction [Unknown]
  - Blood pressure increased [Unknown]
  - Cough [Recovered/Resolved]
  - Oral herpes [Not Recovered/Not Resolved]
  - Pain [Recovered/Resolved]
  - Arthralgia [Recovered/Resolved]
  - Bronchitis [Recovered/Resolved]
  - Rheumatoid arthritis [Not Recovered/Not Resolved]
  - Joint swelling [Recovering/Resolving]
  - White blood cell count increased [Unknown]
  - Arthralgia [Unknown]
  - Musculoskeletal stiffness [Not Recovered/Not Resolved]
  - Pain [Not Recovered/Not Resolved]
  - Blood pressure diastolic decreased [Unknown]
  - Blood pressure diastolic abnormal [Unknown]
  - White blood cell count decreased [Unknown]
  - Weight increased [Unknown]
  - Fungal infection [Not Recovered/Not Resolved]
  - Burning sensation [Recovering/Resolving]
  - Discharge [Recovering/Resolving]
  - Back pain [Unknown]

NARRATIVE: CASE EVENT DATE: 20130714
